FAERS Safety Report 6432640-2 (Version None)
Quarter: 2009Q4

REPORT INFORMATION
  Report Type: 
  Country: None (occurrence: None)
  Receive Date: 20091109
  Receipt Date: 20091030
  Transmission Date: 20100525
  Serious: Yes (Disabling, Other)
  Sender: FDA-Public Use
  Company Number: US-ELI_LILLY_AND_COMPANY-US200911000071

PATIENT
  Sex: Female

DRUGS (2)
  1. HUMATROPE [Suspect]
     Indication: GROWTH HORMONE DEFICIENCY
     Dosage: 0.1 MG, DAILY (1/D) 1 CLICK
     Dates: start: 20040101
  2. HUMATROPE [Suspect]
     Dosage: 0.4 MG, DAILY (1/D)

REACTIONS (6)
  - FOOT DEFORMITY [None]
  - FOOT FRACTURE [None]
  - KNEE ARTHROPLASTY [None]
  - MUSCULAR WEAKNESS [None]
  - NEUROPATHY PERIPHERAL [None]
  - SKIN ULCER [None]
